FAERS Safety Report 7379015-X (Version None)
Quarter: 2011Q1

REPORT INFORMATION
  Report Type: 
  Country: None (occurrence: None)
  Receive Date: 20110328
  Receipt Date: 20110321
  Transmission Date: 20110831
  Serious: Yes (Death)
  Sender: FDA-Public Use
  Company Number: RU-GENZYME-CERZ-1001702

PATIENT

DRUGS (4)
  1. CEREZYME [Suspect]
     Indication: GAUCHER'S DISEASE
     Dosage: 1200 U, UNK
     Route: 042
     Dates: start: 20100201
  2. PYRIDOXINE [Concomitant]
     Indication: EPILEPSY
  3. LEVETIRACETAM [Concomitant]
     Indication: EPILEPSY
  4. TRILEPTAL [Concomitant]
     Indication: EPILEPSY
     Dosage: 150 MG, QD
     Route: 048

REACTIONS (2)
  - PNEUMONIA [None]
  - RESPIRATORY DISTRESS [None]
